FAERS Safety Report 9381953 (Version 5)
Quarter: 2014Q1

REPORT INFORMATION
  Report Type: Report from Study
  Country: FR (occurrence: FR)
  Receive Date: 20130703
  Receipt Date: 20140129
  Transmission Date: 20141002
  Serious: Yes (Hospitalization)
  Sender: FDA-Public Use
  Company Number: FR-BAYER-2013-080296

PATIENT
  Age: 52 Year
  Sex: Male
  Weight: 90 kg

DRUGS (9)
  1. REGORAFENIB [Suspect]
     Indication: COLORECTAL CANCER METASTATIC
     Dosage: 160 MG
     Route: 048
     Dates: start: 20121206, end: 20121217
  2. REGORAFENIB [Suspect]
     Indication: COLORECTAL CANCER METASTATIC
     Dosage: 160 MG
     Route: 048
     Dates: start: 20121206, end: 20121217
  3. REGORAFENIB [Suspect]
     Indication: COLORECTAL CANCER METASTATIC
     Dosage: 160 MG
     Route: 048
     Dates: start: 20121206, end: 20121217
  4. REGORAFENIB [Suspect]
     Indication: COLORECTAL CANCER METASTATIC
     Dosage: 120 MG
     Route: 048
     Dates: start: 20121222
  5. LOVENOX [Concomitant]
     Indication: THROMBOSIS PROPHYLAXIS
     Dosage: 0.4 ML DAILY
     Route: 058
     Dates: start: 20121217, end: 20121221
  6. IMOVANE [Concomitant]
     Indication: INSOMNIA
     Dosage: 3.75 MG DAILY
     Route: 048
     Dates: start: 20121219, end: 20121221
  7. PRIMPERAN [Concomitant]
     Indication: NAUSEA
     Dosage: 1 DF, TID
     Route: 048
     Dates: start: 20121218, end: 20121218
  8. VOGALENE [Concomitant]
     Indication: NAUSEA
     Dosage: 1
     Route: 054
     Dates: start: 20121214, end: 20121220
  9. FORLAX [Concomitant]
     Indication: CONSTIPATION
     Dosage: 1
     Route: 048
     Dates: start: 20121214, end: 20121220

REACTIONS (1)
  - Lung disorder [Recovered/Resolved]
